FAERS Safety Report 21231531 (Version 7)
Quarter: 2022Q4

REPORT INFORMATION
  Report Type: Report from Study
  Country: CO (occurrence: CO)
  Receive Date: 20220819
  Receipt Date: 20221223
  Transmission Date: 20230112
  Serious: Yes (Death, Life-Threatening, Hospitalization, Other)
  Sender: FDA-Public Use
  Company Number: CO-AMGEN-COLSL2022128175

PATIENT
  Age: 71 Year
  Sex: Female

DRUGS (3)
  1. KYPROLIS [Suspect]
     Active Substance: CARFILZOMIB
     Indication: Plasma cell myeloma
     Dosage: 60 MILLIGRAM
     Route: 042
     Dates: start: 20210114
  2. KYPROLIS [Suspect]
     Active Substance: CARFILZOMIB
     Dosage: 60 MILLIGRAM
     Route: 065
     Dates: start: 20220728, end: 20221202
  3. DARATUMUMAB [Concomitant]
     Active Substance: DARATUMUMAB
     Indication: Plasma cell myeloma
     Dosage: UNK
     Route: 065
     Dates: start: 202207

REACTIONS (21)
  - Death [Fatal]
  - Intensive care [Recovered/Resolved]
  - Respiratory distress [Recovering/Resolving]
  - Asphyxia [Recovering/Resolving]
  - Pain [Recovering/Resolving]
  - Coma [Recovered/Resolved]
  - Medical procedure [Recovered/Resolved]
  - Somnolence [Not Recovered/Not Resolved]
  - Diagnostic procedure [Not Recovered/Not Resolved]
  - Malaise [Not Recovered/Not Resolved]
  - Asthenia [Not Recovered/Not Resolved]
  - Pyrexia [Recovering/Resolving]
  - Plasma cell myeloma [Recovered/Resolved]
  - Bacteraemia [Not Recovered/Not Resolved]
  - Anaemia [Recovered/Resolved]
  - Discomfort [Not Recovered/Not Resolved]
  - Decreased appetite [Not Recovered/Not Resolved]
  - Hypersomnia [Not Recovered/Not Resolved]
  - Mobility decreased [Not Recovered/Not Resolved]
  - Feeling abnormal [Not Recovered/Not Resolved]
  - Bedridden [Not Recovered/Not Resolved]

NARRATIVE: CASE EVENT DATE: 20220101
